FAERS Safety Report 6617818-7 (Version None)
Quarter: 2010Q1

REPORT INFORMATION
  Report Type: 
  Country: None (occurrence: None)
  Receive Date: 20100308
  Receipt Date: 20100303
  Transmission Date: 20100710
  Serious: Yes (Death, Other)
  Sender: FDA-Public Use
  Company Number: PHHY2010MX10386

PATIENT
  Sex: Male

DRUGS (2)
  1. STALEVO 100 [Suspect]
     Indication: PARKINSON'S DISEASE
     Dosage: 325 MG DAILY
     Route: 048
     Dates: start: 20060201
  2. INSULIN [Concomitant]
     Indication: DIABETES MELLITUS

REACTIONS (8)
  - DECREASED APPETITE [None]
  - FATIGUE [None]
  - HYPOGLYCAEMIA [None]
  - INCREASED UPPER AIRWAY SECRETION [None]
  - MOBILITY DECREASED [None]
  - PNEUMONIA [None]
  - RESPIRATORY ARREST [None]
  - SHOCK HYPOGLYCAEMIC [None]
